FAERS Safety Report 9678920 (Version 1)
Quarter: 2013Q4

REPORT INFORMATION
  Report Type: Spontaneous
  Country: US (occurrence: US)
  Receive Date: 20131108
  Receipt Date: 20131108
  Transmission Date: 20140711
  Serious: Yes (Other)
  Sender: FDA-Public Use
  Company Number: US-PFIZER INC-2013318147

PATIENT
  Age: 59 Year
  Sex: Female
  Weight: 78.91 kg

DRUGS (4)
  1. LYRICA [Suspect]
     Indication: FIBROMYALGIA
     Dosage: 75 MG, 2X/DAY
     Route: 048
  2. LYRICA [Suspect]
     Indication: SPINAL PAIN
  3. LYRICA [Suspect]
     Indication: NEUROPATHY PERIPHERAL
  4. SEROQUEL XR [Concomitant]
     Indication: DEPRESSION
     Dosage: 50 MG, DAILY

REACTIONS (1)
  - Arthropathy [Unknown]
